FAERS Safety Report 5087955-X (Version None)
Quarter: 2006Q3

REPORT INFORMATION
  Report Type: 
  Country: None (occurrence: None)
  Receive Date: 20060821
  Receipt Date: 20060810
  Transmission Date: 20061208
  Serious: Yes (Hospitalization, Disabling, Other)
  Sender: FDA-Public Use
  Company Number: 2006-07-0501

PATIENT
  Age: 53 Year
  Sex: Male
  Weight: 114.3065 kg

DRUGS (10)
  1. PEG-INTRON (INTERFERON ALFA-2B)  REDIPEN [Suspect]
     Indication: HEPATITIS C
     Dosage: 150 MCG QWK SUBCUTANEOUS
     Route: 058
     Dates: start: 20060524, end: 20060619
  2. REBETOL [Suspect]
     Indication: HEPATITIS C
     Dosage: ORAL
     Route: 048
     Dates: start: 20060524, end: 20060619
  3. MS CONTIN [Concomitant]
  4. OXYCODONE HCL [Concomitant]
  5. CLONAZEPAM [Concomitant]
  6. LISINOPRIL [Concomitant]
  7. LACTULOSE SOL POWDER-GMP [Concomitant]
  8. CLONIDINE HCL [Concomitant]
  9. AMITRIPTYLINE HYDROCHLORIDE [Concomitant]
  10. CITALOPRAM HYDROBROMIDE [Concomitant]

REACTIONS (7)
  - COMA [None]
  - CONFUSIONAL STATE [None]
  - DELIRIUM [None]
  - ENCEPHALOPATHY [None]
  - EXTENSOR PLANTAR RESPONSE [None]
  - MENTAL STATUS CHANGES [None]
  - RENAL FAILURE [None]
